APPROVED DRUG PRODUCT: REPAGLINIDE
Active Ingredient: REPAGLINIDE
Strength: 1MG
Dosage Form/Route: TABLET;ORAL
Application: A078555 | Product #002 | TE Code: AB
Applicant: CHARTWELL RX SCIENCES LLC
Approved: Jan 22, 2014 | RLD: No | RS: No | Type: RX